FAERS Safety Report 7687203-8 (Version None)
Quarter: 2011Q3

REPORT INFORMATION
  Report Type: 
  Country: None (occurrence: None)
  Receive Date: 20110816
  Receipt Date: 20110811
  Transmission Date: 20111222
  Serious: Yes (Other)
  Sender: FDA-Public Use
  Company Number: US-PFIZER INC-2011185847

PATIENT
  Sex: Female

DRUGS (7)
  1. ZINC [Concomitant]
  2. NORTRIPTYLINE HCL [Suspect]
     Indication: IRRITABLE BOWEL SYNDROME
     Dosage: TOOK FOR ONE NIGHT
  3. NEXIUM [Suspect]
  4. NORTRIPTYLINE HCL [Suspect]
     Indication: SLEEP DISORDER
  5. FLEXERIL [Concomitant]
  6. GABAPENTIN [Suspect]
     Indication: RAPID EYE MOVEMENTS SLEEP ABNORMAL
     Dosage: 300 MG, 1X/DAY AT BEDTIME
  7. VICODIN [Concomitant]

REACTIONS (5)
  - FIBROMYALGIA [None]
  - DYSPNOEA [None]
  - SLEEP APNOEA SYNDROME [None]
  - NIGHTMARE [None]
  - PREMATURE AGEING [None]
